FAERS Safety Report 5658984-X (Version None)
Quarter: 2008Q1

REPORT INFORMATION
  Report Type: 
  Country: None (occurrence: None)
  Receive Date: 20080310
  Receipt Date: 20070516
  Transmission Date: 20080703
  Serious: No
  Sender: FDA-Public Use
  Company Number: US-BAYER-200711565BCC

PATIENT
  Age: 83 Year
  Sex: Female
  Weight: 52 kg

DRUGS (12)
  1. ALEVE [Suspect]
     Indication: BACK PAIN
     Dosage: TOTAL DAILY DOSE: 220 MG  UNIT DOSE: 220 MG
     Route: 048
     Dates: start: 20070501
  2. ASPIRIN [Suspect]
     Indication: DRUG USE FOR UNKNOWN INDICATION
     Route: 048
  3. PLAVIX [Concomitant]
  4. LASIX [Concomitant]
  5. PRANDIN [Concomitant]
  6. LANTUS [Concomitant]
  7. TOPROL [Concomitant]
  8. CLONAZEPAM [Concomitant]
  9. NEXIUM [Concomitant]
  10. TRICOR [Concomitant]
  11. CADUET [Concomitant]
  12. FOSAMAX [Concomitant]

REACTIONS (1)
  - ABDOMINAL PAIN UPPER [None]
